FAERS Safety Report 10373293 (Version 2)
Quarter: 2014Q3

REPORT INFORMATION
  Report Type: Spontaneous
  Country: US (occurrence: US)
  Receive Date: 20140808
  Receipt Date: 20140808
  Transmission Date: 20150326
  Serious: Yes (Hospitalization, Other)
  Sender: FDA-Public Use
  Company Number: US-BRISTOL-MYERS SQUIBB COMPANY-20412789

PATIENT
  Age: 54 Year
  Sex: Male

DRUGS (1)
  1. SPRYCEL [Suspect]
     Active Substance: DASATINIB
     Indication: ACUTE LYMPHOCYTIC LEUKAEMIA
     Route: 048
     Dates: start: 20130928

REACTIONS (9)
  - Weight decreased [Unknown]
  - Epistaxis [Unknown]
  - Balance disorder [Unknown]
  - Fungal infection [Unknown]
  - Thrombocytopenia [Unknown]
  - Increased tendency to bruise [Unknown]
  - Viral infection [Unknown]
  - Asthenia [Unknown]
  - Pneumonia [Unknown]
